FAERS Safety Report 6755207-5 (Version None)
Quarter: 2010Q2

REPORT INFORMATION
  Report Type: 
  Country: None (occurrence: None)
  Receive Date: 20100604
  Receipt Date: 20100526
  Transmission Date: 20101027
  Serious: No
  Sender: FDA-Public Use
  Company Number: US-BIOGENIDEC-2010BI017786

PATIENT
  Age: 34 Year
  Sex: Female

DRUGS (2)
  1. TYSABRI [Suspect]
     Indication: MULTIPLE SCLEROSIS
     Route: 042
     Dates: start: 20061005, end: 20080610
  2. TYSABRI [Suspect]
     Route: 042
     Dates: start: 20090617

REACTIONS (3)
  - ARTHRALGIA [None]
  - FALL [None]
  - GAIT DISTURBANCE [None]
